FAERS Safety Report 25862083 (Version 1)
Quarter: 2025Q3

REPORT INFORMATION
  Report Type: Spontaneous
  Country: CN (occurrence: CN)
  Receive Date: 20250930
  Receipt Date: 20250930
  Transmission Date: 20251021
  Serious: Yes (Hospitalization, Other)
  Sender: BAXTER
  Company Number: None

PATIENT
  Age: 59 Year
  Sex: Male
  Weight: 64 kg

DRUGS (6)
  1. IFOSFAMIDE [Suspect]
     Active Substance: IFOSFAMIDE
     Indication: Burkitt^s lymphoma
     Dosage: 2 G, QD
     Route: 041
     Dates: start: 20250827, end: 20250827
  2. IFOSFAMIDE [Suspect]
     Active Substance: IFOSFAMIDE
     Dosage: 1 G, QD
     Route: 041
     Dates: start: 20250828, end: 20250831
  3. MESNA [Suspect]
     Active Substance: MESNA
     Route: 065
     Dates: start: 20250827
  4. ETOPOSIDE [Suspect]
     Active Substance: ETOPOSIDE
     Indication: Burkitt^s lymphoma
     Dosage: 80 MG, QD
     Route: 041
     Dates: start: 20250827, end: 20250831
  5. CYTARABINE [Suspect]
     Active Substance: CYTARABINE
     Indication: Burkitt^s lymphoma
     Dosage: 2 G, BID
     Route: 041
     Dates: start: 20250827, end: 20250827
  6. CYTARABINE [Suspect]
     Active Substance: CYTARABINE
     Dosage: 1.5 G, BID
     Route: 041
     Dates: start: 20250828, end: 20250830

REACTIONS (3)
  - Myelosuppression [Recovering/Resolving]
  - White blood cell count decreased [Recovering/Resolving]
  - Platelet count decreased [Recovering/Resolving]

NARRATIVE: CASE EVENT DATE: 20250907
